FAERS Safety Report 9525872 (Version 1)
Quarter: 2013Q1

REPORT INFORMATION
  Report Type: Spontaneous
  Country: US (occurrence: None)
  Receive Date: 20130314
  Receipt Date: 20130314
  Transmission Date: 20140127
  Serious: No
  Sender: FDA-Public Use
  Company Number: 1212USA010734

PATIENT
  Sex: Female

DRUGS (4)
  1. VICTRELIS (BOCEPREVIR) CAPSULE, 200MG [Suspect]
     Route: 048
  2. GABAPENTIN (GABAPENTIN) [Concomitant]
  3. CHOLECALCIFEROL (CHOLECALCIFEROL) [Concomitant]
  4. VITAMIN B COMPLEX (VITAMIN B COMPLEX) [Concomitant]

REACTIONS (1)
  - Fatigue [None]
